FAERS Safety Report 10023977 (Version 1)
Quarter: 2014Q1

REPORT INFORMATION
  Report Type: Spontaneous
  Country: FR (occurrence: None)
  Receive Date: 20140123
  Receipt Date: 20140123
  Transmission Date: 20141002
  Serious: No
  Sender: FDA-Public Use
  Company Number: 2013FR0407

PATIENT
  Age: 24 Year
  Sex: Female

DRUGS (5)
  1. KINERET [Suspect]
     Indication: FAMILIAL MEDITERRANEAN FEVER
     Route: 058
     Dates: start: 20120716, end: 20131030
  2. KINERET [Suspect]
     Indication: ACQUIRED AMINOACIDURIA
     Route: 058
     Dates: start: 20120716, end: 20131030
  3. COLCHICINE (COLCHICINE) (COLCHICINE) [Concomitant]
  4. TAHOR (ATORVASTATIN CALCIUM) (ATORVASTATIN CALCIUM) [Concomitant]
  5. TRIATEC (RAMIPRIL) (RAMIPRIL) [Concomitant]

REACTIONS (4)
  - Neutropenia [None]
  - Anaemia [None]
  - Myelodysplastic syndrome [None]
  - Leukopenia [None]
